FAERS Safety Report 7485509-9 (Version None)
Quarter: 2011Q2

REPORT INFORMATION
  Report Type: 
  Country: None (occurrence: None)
  Receive Date: 20110517
  Receipt Date: 20101223
  Transmission Date: 20111010
  Serious: Yes (Other)
  Sender: FDA-Public Use
  Company Number: US-BAYER-2010-008459

PATIENT
  Sex: Female
  Weight: 84 kg

DRUGS (1)
  1. ALEVE (CAPLET) [Suspect]
     Indication: ARTHRITIS
     Dosage: 2 DF, OM
     Route: 048

REACTIONS (3)
  - MUCOUS MEMBRANE DISORDER [None]
  - GASTRITIS [None]
  - HAEMATOCHEZIA [None]
